FAERS Safety Report 16126745 (Version 1)
Quarter: 2019Q1

REPORT INFORMATION
  Report Type: Spontaneous
  Country: US (occurrence: US)
  Receive Date: 20190222
  Receipt Date: 20190222
  Transmission Date: 20190418
  Serious: Yes (Hospitalization)
  Sender: FDA-Public Use
  Company Number: None

PATIENT
  Age: 73 Year
  Sex: Male
  Weight: 83 kg

DRUGS (2)
  1. CASODEX [Suspect]
     Active Substance: BICALUTAMIDE
     Dates: end: 20170228
  2. TRIPTORELIN [Suspect]
     Active Substance: TRIPTORELIN
     Dates: end: 20181102

REACTIONS (1)
  - Hip fracture [None]

NARRATIVE: CASE EVENT DATE: 20180808
